FAERS Safety Report 21878219 (Version 2)
Quarter: 2023Q1

REPORT INFORMATION
  Report Type: Report from Study
  Country: FR (occurrence: FR)
  Receive Date: 20230118
  Receipt Date: 20230125
  Transmission Date: 20230417
  Serious: Yes (Other)
  Sender: FDA-Public Use
  Company Number: FR-ASTELLAS-2023US001023

PATIENT
  Age: 77 Year
  Sex: Male
  Weight: 60 kg

DRUGS (2)
  1. ENFORTUMAB VEDOTIN [Suspect]
     Active Substance: ENFORTUMAB VEDOTIN
     Indication: Transitional cell carcinoma
     Dosage: 78 MG, CYCLIC (ONCE A WEEK/CURE; 2WEEKS BETWEEN 2 CURES)
     Route: 042
     Dates: start: 20211229, end: 20220719
  2. ENFORTUMAB VEDOTIN [Suspect]
     Active Substance: ENFORTUMAB VEDOTIN
     Dosage: 75 MG, CYCLIC (ONCE A WEEK/CURE; 2WEEKS BETWEEN 2 CURES)
     Route: 042
     Dates: start: 20220720, end: 20220722

REACTIONS (4)
  - Diabetes mellitus [Recovered/Resolved]
  - Neuropathy peripheral [Recovering/Resolving]
  - Asthenia [Not Recovered/Not Resolved]
  - Diarrhoea [Recovered/Resolved]

NARRATIVE: CASE EVENT DATE: 20220119
